FAERS Safety Report 17712802 (Version 1)
Quarter: 2020Q2

REPORT INFORMATION
  Report Type: Report from Study
  Country: NL (occurrence: NL)
  Receive Date: 20200427
  Receipt Date: 20200427
  Transmission Date: 20200714
  Serious: Yes (Other)
  Sender: FDA-Public Use
  Company Number: NL-CURIUM-201000545

PATIENT
  Age: 47 Year
  Sex: Male

DRUGS (2)
  1. OCTREOSCAN [Suspect]
     Active Substance: INDIUM IN-111 CHLORIDE\INDIUM IN-111 PENTETREOTIDE
     Indication: GASTRINOMA
     Dosage: COMMUTATIVE DOSE FOR 3 CYCLES
     Route: 051
  2. OCTREOSCAN [Suspect]
     Active Substance: INDIUM IN-111 CHLORIDE\INDIUM IN-111 PENTETREOTIDE
     Indication: GASTRINOMA
     Dosage: FIRST CYCLE
     Route: 051

REACTIONS (3)
  - Product use issue [Recovered/Resolved]
  - Thrombocytopenia [Recovered/Resolved]
  - Product use in unapproved indication [Recovered/Resolved]
